FAERS Safety Report 8520810 (Version 6)
Quarter: 2013Q1

REPORT INFORMATION
  Report Type: Spontaneous
  Country: US (occurrence: US)
  Receive Date: 20120419
  Receipt Date: 20130308
  Transmission Date: 20140127
  Serious: No
  Sender: FDA-Public Use
  Company Number: US-ASTRAZENECA-2012SE00582

PATIENT
  Age: 53 Year
  Sex: Female
  Weight: 73.5 kg

DRUGS (29)
  1. NEXIUM [Suspect]
     Indication: GASTROOESOPHAGEAL REFLUX DISEASE
     Route: 048
  2. PRILOSEC [Suspect]
     Route: 048
  3. SEROQUEL [Suspect]
     Indication: OBSESSIVE-COMPULSIVE DISORDER
     Route: 048
  4. SEROQUEL [Suspect]
     Indication: BIPOLAR DISORDER
     Route: 048
  5. SEROQUEL [Suspect]
     Indication: MANIA
     Route: 048
  6. SEROQUEL [Suspect]
     Indication: DEPRESSION
     Route: 048
  7. SEROQUEL [Suspect]
     Indication: AFFECT LABILITY
     Route: 048
  8. SEROQUEL [Suspect]
     Indication: OBSESSIVE-COMPULSIVE DISORDER
     Route: 048
  9. SEROQUEL [Suspect]
     Indication: BIPOLAR DISORDER
     Route: 048
  10. SEROQUEL [Suspect]
     Indication: MANIA
     Route: 048
  11. SEROQUEL [Suspect]
     Indication: DEPRESSION
     Route: 048
  12. SEROQUEL [Suspect]
     Indication: AFFECT LABILITY
     Route: 048
  13. SEROQUEL [Suspect]
     Indication: OBSESSIVE-COMPULSIVE DISORDER
     Route: 048
  14. SEROQUEL [Suspect]
     Indication: BIPOLAR DISORDER
     Route: 048
  15. SEROQUEL [Suspect]
     Indication: MANIA
     Route: 048
  16. SEROQUEL [Suspect]
     Indication: DEPRESSION
     Route: 048
  17. SEROQUEL [Suspect]
     Indication: AFFECT LABILITY
     Route: 048
  18. SEROQUEL [Suspect]
     Indication: OBSESSIVE-COMPULSIVE DISORDER
     Route: 048
  19. SEROQUEL [Suspect]
     Indication: BIPOLAR DISORDER
     Route: 048
  20. SEROQUEL [Suspect]
     Indication: MANIA
     Route: 048
  21. SEROQUEL [Suspect]
     Indication: DEPRESSION
     Route: 048
  22. SEROQUEL [Suspect]
     Indication: AFFECT LABILITY
     Route: 048
  23. RHINOCORT [Suspect]
     Route: 045
  24. SYMBICORT [Suspect]
     Route: 055
  25. LEXAPRO [Concomitant]
  26. ANTI-INFLAMMATORY [Concomitant]
  27. BP MEDICINE [Concomitant]
  28. ADDERAL [Concomitant]
  29. FLEXERIL [Concomitant]

REACTIONS (13)
  - Polyarthritis [Unknown]
  - Back disorder [Unknown]
  - Affect lability [Not Recovered/Not Resolved]
  - Mental disorder [Unknown]
  - Stress [Unknown]
  - Tooth disorder [Unknown]
  - Infection [Unknown]
  - Peripheral nerve lesion [Unknown]
  - Tremor [Not Recovered/Not Resolved]
  - Weight increased [Not Recovered/Not Resolved]
  - Malaise [Unknown]
  - Drug dose omission [Not Recovered/Not Resolved]
  - Drug ineffective [Unknown]
